FAERS Safety Report 12981520 (Version 3)
Quarter: 2017Q2

REPORT INFORMATION
  Report Type: Spontaneous
  Country: JP (occurrence: JP)
  Receive Date: 20161129
  Receipt Date: 20170412
  Transmission Date: 20170830
  Serious: Yes (Death, Life-Threatening, Hospitalization, Other)
  Sender: FDA-Public Use
  Company Number: JP-ROCHE-1860949

PATIENT
  Age: 73 Year
  Sex: Male
  Weight: 71 kg

DRUGS (3)
  1. XELODA [Suspect]
     Active Substance: CAPECITABINE
     Indication: COLON CANCER
     Dosage: 2 WEEKS ADMINISTRATION FOLLOWED BY 1 WEEK REST
     Route: 048
     Dates: start: 20160909, end: 20160920
  2. HIRUDOID OINTMENT [Concomitant]
     Indication: PROPHYLAXIS
     Dosage: 4-5 TIMES/DAY?APPLICATION TO HANDS AND FEET.
     Route: 003
     Dates: start: 20160909
  3. VITAMEDIN (JAPAN) [Concomitant]
     Indication: PROPHYLAXIS
     Route: 048
     Dates: start: 20160909

REACTIONS (15)
  - Malaise [Not Recovered/Not Resolved]
  - Stomatitis [Not Recovered/Not Resolved]
  - Off label use [Unknown]
  - Febrile neutropenia [Fatal]
  - Gait disturbance [Unknown]
  - Acute kidney injury [Recovering/Resolving]
  - Nausea [Unknown]
  - Palmar-plantar erythrodysaesthesia syndrome [Not Recovered/Not Resolved]
  - Decreased appetite [Not Recovered/Not Resolved]
  - Diarrhoea [Not Recovered/Not Resolved]
  - Melaena [Not Recovered/Not Resolved]
  - Hiccups [Unknown]
  - Platelet count decreased [Not Recovered/Not Resolved]
  - Dehydration [Recovering/Resolving]
  - Haematemesis [Unknown]

NARRATIVE: CASE EVENT DATE: 20160920
